FAERS Safety Report 10189655 (Version 2)
Quarter: 2014Q2

REPORT INFORMATION
  Report Type: Spontaneous
  Country: US (occurrence: US)
  Receive Date: 20140522
  Receipt Date: 20140522
  Transmission Date: 20141212
  Serious: No
  Sender: FDA-Public Use
  Company Number: US-ASTRAZENECA-2013SE70299

PATIENT
  Age: 89 Year
  Sex: Female

DRUGS (3)
  1. PULMICORT FLEXHALER [Suspect]
     Indication: DYSPNOEA
     Dosage: 2 PUFFS BID
     Route: 055
  2. PULMICORT FLEXHALER [Suspect]
     Indication: DYSPNOEA
     Dosage: 2 PUFFS BID
     Route: 055
     Dates: start: 201309
  3. PULMICORT FLEXHALER [Suspect]
     Indication: DYSPNOEA
     Dosage: 360 MCG BID
     Route: 055
     Dates: start: 20131113

REACTIONS (6)
  - Tongue coated [Not Recovered/Not Resolved]
  - Dyspnoea [Unknown]
  - Off label use [Unknown]
  - Intentional product misuse [Unknown]
  - Drug dose omission [Unknown]
  - Wrong technique in drug usage process [Unknown]
